FAERS Safety Report 5545264-6 (Version None)
Quarter: 2007Q4

REPORT INFORMATION
  Report Type: 
  Country: None (occurrence: None)
  Receive Date: 20071211
  Receipt Date: 20071130
  Transmission Date: 20080405
  Serious: Yes (Other)
  Sender: FDA-Public Use
  Company Number: PHBS2007CH20131

PATIENT
  Age: 44 Year
  Sex: Female

DRUGS (1)
  1. ZELMAC [Suspect]
     Dates: start: 20070801, end: 20070806

REACTIONS (3)
  - ABORTION SPONTANEOUS [None]
  - DRUG EXPOSURE DURING PREGNANCY [None]
  - PLACENTA ACCRETA [None]
